FAERS Safety Report 17138133 (Version 8)
Quarter: 2020Q2

REPORT INFORMATION
  Report Type: Report from Study
  Country: US (occurrence: US)
  Receive Date: 20191211
  Receipt Date: 20200604
  Transmission Date: 20200713
  Serious: Yes (Other)
  Sender: FDA-Public Use
  Company Number: NVSC2019US060828

PATIENT
  Age: 3 Year
  Sex: Male
  Weight: 14.6 kg

DRUGS (20)
  1. TRAMETINIB [Suspect]
     Active Substance: TRAMETINIB
     Indication: METASTATIC MALIGNANT MELANOMA
     Dosage: 0.032 MG/KG, QD (0.448MG)
     Route: 048
     Dates: start: 20191106
  2. SOLU-CORTEF [Concomitant]
     Active Substance: HYDROCORTISONE SODIUM SUCCINATE
     Indication: PRODUCT USED FOR UNKNOWN INDICATION
     Dosage: 50 MG, PRN (1 ML) FOR STRESS DOSE WHEN UNABLE TO TAKE MEDICATION BY MOUTH (SYRINGE WITH NEEDLE, SAFE
     Route: 030
  3. BACTRIM [Concomitant]
     Active Substance: SULFAMETHOXAZOLE\TRIMETHOPRIM
     Indication: PRODUCT USED FOR UNKNOWN INDICATION
     Dosage: 3 ML TWO TIMES A DAY ON SATURDAY AND SUNDAY
     Route: 048
  4. CATAPRES [Concomitant]
     Active Substance: CLONIDINE HYDROCHLORIDE
     Indication: PRODUCT USED FOR UNKNOWN INDICATION
     Dosage: 0.2 MG, QD AS NEEDED
     Route: 048
  5. SYNTHROID [Concomitant]
     Active Substance: LEVOTHYROXINE SODIUM
     Indication: PRODUCT USED FOR UNKNOWN INDICATION
     Dosage: 0.5 DF (62.5 MCG TOTAL OF 125 MCG TABLET)
     Route: 048
  6. TRAMETINIB [Suspect]
     Active Substance: TRAMETINIB
     Dosage: 0.032 MG/KG, QD (0.448MG)
     Route: 048
     Dates: start: 20191204, end: 20191220
  7. ROXICODONE [Concomitant]
     Active Substance: OXYCODONE HYDROCHLORIDE
     Indication: PAIN
     Dosage: 0.5 MG, Q6H (0.5 ML BY G-TUBE ROUTE AS NEEDED FOR UP TO 5 DAYS
     Route: 065
  8. DECADRON [Concomitant]
     Active Substance: DEXAMETHASONE
     Indication: PRODUCT USED FOR UNKNOWN INDICATION
     Dosage: 1 MG/ML, Q8H FOR 5 DAYS
     Route: 048
  9. GENERLAC [Concomitant]
     Active Substance: LACTULOSE
     Indication: PRODUCT USED FOR UNKNOWN INDICATION
     Dosage: (SOLUTION)
     Route: 048
  10. EMLA [Concomitant]
     Active Substance: LIDOCAINE\PRILOCAINE
     Indication: PAIN
     Dosage: (AS NEEDED 30MIN TO 1 HOUR PRIOR TO PORTACATH ACCESS AND COVER WITH OCCLUSIVE DRESSING)
     Route: 061
  11. DDAVP [Concomitant]
     Active Substance: DESMOPRESSIN ACETATE
     Indication: THIRST
     Dosage: 1 DF, BID (PLUS 0.25 TABLET (0.025 MG) AS NEEDED)
     Route: 048
  12. EMEND [Concomitant]
     Active Substance: APREPITANT
     Indication: PRODUCT USED FOR UNKNOWN INDICATION
     Dosage: 0.8 ML, QOD (25 MG/ ML FINAL CONC.) SUSPENSION FOR RECONSTITUTION
     Route: 048
  13. DDAVP [Concomitant]
     Active Substance: DESMOPRESSIN ACETATE
     Indication: URINE OUTPUT INCREASED
  14. CORTEF [Concomitant]
     Active Substance: HYDROCORTISONE
     Indication: PRODUCT USED FOR UNKNOWN INDICATION
     Dosage: 1/2 TABLET IN THE MORNING, 1/4 TABLET IN THE AFTERNOON, 1/4 TABLET IN EVENING (2 TABLETS THREE TIMES
     Route: 065
  15. MELATONIN [Concomitant]
     Active Substance: MELATONIN
     Indication: INSOMNIA
     Dosage: 3 MG, PRN NIGHTLY (3 ML)
     Route: 048
  16. MYCOSTATIN [Concomitant]
     Active Substance: NYSTATIN
     Indication: PRODUCT USED FOR UNKNOWN INDICATION
     Dosage: UNK
     Route: 065
  17. ZOFRAN [Concomitant]
     Active Substance: ONDANSETRON HYDROCHLORIDE
     Indication: NAUSEA
     Dosage: 2 ML, Q8H (VIA G TUBE EVERY) PRN
     Route: 048
  18. ZANTAC [Concomitant]
     Active Substance: RANITIDINE HYDROCHLORIDE
     Indication: PRODUCT USED FOR UNKNOWN INDICATION
     Dosage: 30 MG, BID (2MLS PER TUBE)
     Route: 065
  19. TRAMETINIB [Suspect]
     Active Substance: TRAMETINIB
     Dosage: 0.024 MG
     Route: 048
     Dates: start: 20191222
  20. PRILOSEC [Concomitant]
     Active Substance: OMEPRAZOLE MAGNESIUM
     Indication: PRODUCT USED FOR UNKNOWN INDICATION
     Dosage: 8 MG, QD (4 ML BY G-TUBE ROUTE)
     Route: 065

REACTIONS (19)
  - Weight increased [Unknown]
  - Vomiting [Recovered/Resolved]
  - Pruritus [Recovered/Resolved]
  - Urticaria [Unknown]
  - Gastrointestinal disorder [Recovering/Resolving]
  - Tenderness [Recovered/Resolved]
  - Rash maculo-papular [Not Recovered/Not Resolved]
  - Rash [Not Recovered/Not Resolved]
  - Rash maculo-papular [Recovered/Resolved with Sequelae]
  - Eye pain [Not Recovered/Not Resolved]
  - Vomiting [Recovered/Resolved]
  - Vomiting [Recovered/Resolved]
  - Diarrhoea [Recovered/Resolved]
  - Vomiting [Recovered/Resolved]
  - Cough [Not Recovered/Not Resolved]
  - Abdominal pain upper [Recovering/Resolving]
  - Rhinorrhoea [Unknown]
  - Rash pustular [Recovered/Resolved]
  - Rash maculo-papular [Not Recovered/Not Resolved]

NARRATIVE: CASE EVENT DATE: 20191113
